FAERS Safety Report 9129676 (Version 1)
Quarter: 2013Q1

REPORT INFORMATION
  Report Type: Spontaneous
  Country: US (occurrence: US)
  Receive Date: 20130228
  Receipt Date: 20130228
  Transmission Date: 20140127
  Serious: Yes (Death, Hospitalization, Other)
  Sender: FDA-Public Use
  Company Number: US-ROCHE-1194076

PATIENT
  Age: 33 Year
  Sex: Female

DRUGS (6)
  1. DIAZEPAM [Suspect]
     Indication: PRODUCT USED FOR UNKNOWN INDICATION
     Route: 048
  2. DIAZEPAM [Suspect]
     Route: 048
  3. CLONAZEPAM [Suspect]
     Indication: PRODUCT USED FOR UNKNOWN INDICATION
     Route: 048
  4. CLONAZEPAM [Suspect]
     Route: 048
  5. AMANTADINE [Suspect]
     Indication: PRODUCT USED FOR UNKNOWN INDICATION
     Route: 048
  6. AMANTADINE [Suspect]
     Route: 048

REACTIONS (9)
  - Toxicity to various agents [Fatal]
  - Cardiac arrest [Unknown]
  - Septic shock [Unknown]
  - Acute respiratory distress syndrome [Unknown]
  - Disorientation [Unknown]
  - Ventricular tachycardia [Unknown]
  - Convulsion [Unknown]
  - Confusional state [Unknown]
  - Hallucination [Unknown]
